FAERS Safety Report 7192968-8 (Version None)
Quarter: 2010Q4

REPORT INFORMATION
  Report Type: 
  Country: None (occurrence: None)
  Receive Date: 20101223
  Receipt Date: 20101001
  Transmission Date: 20110411
  Serious: No
  Sender: FDA-Public Use
  Company Number: US-BAYER-201022117BCC

PATIENT
  Sex: Female

DRUGS (1)
  1. ALEVE [Suspect]
     Dosage: 10 DF, UNK

REACTIONS (1)
  - OVERDOSE [None]
